FAERS Safety Report 9814844 (Version 2)
Quarter: 2014Q2

REPORT INFORMATION
  Report Type: Spontaneous
  Country: US (occurrence: US)
  Receive Date: 20140113
  Receipt Date: 20140515
  Transmission Date: 20141212
  Serious: Yes (Hospitalization)
  Sender: FDA-Public Use
  Company Number: US-GLAXOSMITHKLINE-A1056260A

PATIENT
  Age: 69 Year
  Sex: Female

DRUGS (28)
  1. TYKERB [Suspect]
     Indication: BREAST CANCER
     Dosage: 250MG UNKNOWN
     Route: 065
     Dates: start: 20121212, end: 20140103
  2. ACETAMINOPHEN [Concomitant]
  3. INSULIN ASPART [Concomitant]
  4. MAGNESIUM HYDROXIDE [Concomitant]
  5. ASPIRIN [Concomitant]
  6. CALCIUM + VITAMIN D [Concomitant]
  7. DEXAMETHASONE [Concomitant]
  8. DIPHENHYDRAMINE [Concomitant]
  9. DOCUSATE SODIUM [Concomitant]
  10. ESOMEPRAZOLE [Concomitant]
  11. FUROSEMIDE [Concomitant]
  12. MAGNESIUM OXIDE [Concomitant]
  13. MELOXICAM [Concomitant]
  14. POTASSIUM CHLORIDE [Concomitant]
  15. PRAVASTATIN [Concomitant]
  16. VALSARTAN / HYDROCHLOROTHIAZIDE [Concomitant]
  17. 5% DEXTROSE + .45 NORMAL SALINE [Concomitant]
  18. ALUMINIUM SALT + MAGNESIUM HYDROXIDE + SIMETHICONE [Concomitant]
  19. BISACODYL [Concomitant]
  20. DEXTROSE [Concomitant]
  21. GLUCAGON [Concomitant]
  22. HYDROCODONE [Concomitant]
  23. MORPHINE [Concomitant]
  24. ONDANSETRON [Concomitant]
  25. OXYCODONE/APAP [Concomitant]
  26. PROMETHAZINE [Concomitant]
  27. ZOLPIDEM [Concomitant]
  28. AROMASIN [Concomitant]

REACTIONS (11)
  - Hemiparesis [Unknown]
  - Abasia [Unknown]
  - VIIth nerve paralysis [Unknown]
  - Gait disturbance [Unknown]
  - Fall [Unknown]
  - Headache [Unknown]
  - Dysarthria [Unknown]
  - Nervous system disorder [Unknown]
  - Cough [Unknown]
  - Urinary tract disorder [Unknown]
  - Drug ineffective [Unknown]
